FAERS Safety Report 18165114 (Version 1)
Quarter: 2020Q3

REPORT INFORMATION
  Report Type: Report from Study
  Country: US (occurrence: US)
  Receive Date: 20200818
  Receipt Date: 20200818
  Transmission Date: 20201103
  Serious: Yes (Death, Hospitalization)
  Sender: FDA-Public Use
  Company Number: US-ACTELION-A-US2020-205525

PATIENT
  Age: 79 Year
  Sex: Female
  Weight: 57.6 kg

DRUGS (4)
  1. ALYQ [Concomitant]
     Active Substance: TADALAFIL
  2. OXYGEN. [Concomitant]
     Active Substance: OXYGEN
  3. VELETRI [Suspect]
     Active Substance: EPOPROSTENOL
     Indication: PULMONARY HYPERTENSION
     Dosage: 10 NG/KG, PER MIN
     Route: 042
  4. VELETRI [Suspect]
     Active Substance: EPOPROSTENOL
     Dosage: 14 NG/KG, PER MIN
     Route: 042

REACTIONS (15)
  - Illness [Unknown]
  - Nausea [Unknown]
  - Insomnia [Unknown]
  - Stress [Unknown]
  - Decreased appetite [Unknown]
  - Chills [Unknown]
  - Death [Fatal]
  - Abdominal discomfort [Unknown]
  - Urinary tract infection [Unknown]
  - Diarrhoea [Unknown]
  - Headache [Recovered/Resolved]
  - Weight decreased [Unknown]
  - Flushing [Recovered/Resolved]
  - Dyspnoea [Unknown]
  - Heart rate increased [Unknown]

NARRATIVE: CASE EVENT DATE: 20200806
